FAERS Safety Report 18893517 (Version 1)
Quarter: 2021Q1

REPORT INFORMATION
  Report Type: Spontaneous
  Country: US (occurrence: US)
  Receive Date: 20210215
  Receipt Date: 20210215
  Transmission Date: 20210420
  Serious: Yes (Death, Other)
  Sender: FDA-Public Use
  Company Number: US-BAYER-2021-055927

PATIENT
  Age: 59 Year
  Sex: Female

DRUGS (6)
  1. CARBOPLATIN. [Concomitant]
     Active Substance: CARBOPLATIN
  2. SORAFENIB (RAF KINASE INHIBITOR) [Suspect]
     Active Substance: SORAFENIB
     Indication: BREAST CANCER METASTATIC
     Dosage: UNK
     Dates: start: 201504
  3. EVEROLIMUS. [Suspect]
     Active Substance: EVEROLIMUS
  4. PACLITAXEL. [Suspect]
     Active Substance: PACLITAXEL
  5. VINORELBINE [Suspect]
     Active Substance: VINORELBINE TARTRATE
  6. CRIZOTINIB [Suspect]
     Active Substance: CRIZOTINIB

REACTIONS (11)
  - Thrombocytopenia [None]
  - Impaired healing [None]
  - Product use in unapproved indication [None]
  - Metastases to lung [None]
  - Neutropenia [None]
  - Off label use [None]
  - Metastases to liver [None]
  - Metastases to bone [None]
  - Breast cancer metastatic [Fatal]
  - Metastases to lymph nodes [None]
  - Pneumothorax [None]

NARRATIVE: CASE EVENT DATE: 201508
